FAERS Safety Report 7935128-2 (Version None)
Quarter: 2011Q4

REPORT INFORMATION
  Report Type: 
  Country: None (occurrence: None)
  Receive Date: 20111122
  Receipt Date: 20111116
  Transmission Date: 20120403
  Serious: Yes (Hospitalization)
  Sender: FDA-Public Use
  Company Number: PHHY2011JP91837

PATIENT
  Sex: Male

DRUGS (15)
  1. MICARDIS [Concomitant]
     Dosage: 80 MG, UNK
     Route: 048
  2. AFINITOR [Suspect]
     Dosage: 5 MG
     Route: 048
     Dates: start: 20110808
  3. LASIX [Concomitant]
     Dosage: 80 MG, UNK
     Route: 048
  4. AZUNOL [Concomitant]
     Indication: PROPHYLAXIS
  5. ASPIRIN [Concomitant]
     Dosage: 100 MG, UNK
     Route: 048
  6. SUNITINIB MALATE [Concomitant]
     Indication: METASTATIC RENAL CELL CARCINOMA
     Dosage: 25 MG, UNK
     Route: 048
     Dates: start: 20091029, end: 20110527
  7. INTERFERON ALFA [Concomitant]
     Indication: METASTATIC RENAL CELL CARCINOMA
     Dates: start: 20090210, end: 20090525
  8. UREPEARL [Concomitant]
     Indication: PROPHYLAXIS
  9. AFINITOR [Suspect]
     Dosage: 5 MG, DAILY
     Route: 048
     Dates: start: 20110707, end: 20110720
  10. SORAFENIB TOSILATE [Concomitant]
     Indication: METASTATIC RENAL CELL CARCINOMA
     Dosage: 800 MG, UNK
     Route: 048
     Dates: start: 20090610, end: 20091014
  11. ATELEC [Concomitant]
     Dosage: 20 MG, UNK
     Route: 048
  12. AFINITOR [Suspect]
     Indication: METASTATIC RENAL CELL CARCINOMA
     Dosage: 10 MG, DAILY
     Route: 048
     Dates: start: 20110609, end: 20110620
  13. SUMIFERON [Concomitant]
     Indication: METASTATIC RENAL CELL CARCINOMA
     Dates: start: 20080305, end: 20080724
  14. LIVALO KOWA [Concomitant]
     Dosage: 1 MG, UNK
     Route: 048
  15. AMARYL [Concomitant]
     Dosage: 0.5 MG, UNK
     Route: 048

REACTIONS (3)
  - HERPES ZOSTER [None]
  - BONE MARROW FAILURE [None]
  - PNEUMONIA BACTERIAL [None]
